FAERS Safety Report 22238727 (Version 1)
Quarter: 2023Q2

REPORT INFORMATION
  Report Type: Spontaneous
  Country: US (occurrence: US)
  Receive Date: 20230421
  Receipt Date: 20230421
  Transmission Date: 20230721
  Serious: Yes (Hospitalization, Other)
  Sender: FDA-Public Use
  Company Number: US-009507513-2304USA007680

PATIENT
  Sex: Female

DRUGS (1)
  1. KEYTRUDA [Suspect]
     Active Substance: PEMBROLIZUMAB
     Indication: Malignant melanoma
     Dosage: UNK, Q3W
     Route: 042
     Dates: start: 20230330

REACTIONS (8)
  - Dyspnoea [Unknown]
  - Cough [Not Recovered/Not Resolved]
  - Malignant pleural effusion [Unknown]
  - Malignant ascites [Unknown]
  - Nausea [Recovered/Resolved]
  - Fatigue [Unknown]
  - Pain [Unknown]
  - Nodule [Unknown]

NARRATIVE: CASE EVENT DATE: 20230101
